FAERS Safety Report 18315990 (Version 1)
Quarter: 2020Q3

REPORT INFORMATION
  Report Type: Spontaneous
  Country: GB (occurrence: GB)
  Receive Date: 20200927
  Receipt Date: 20200927
  Transmission Date: 20201103
  Serious: Yes (Hospitalization)
  Sender: FDA-Public Use
  Company Number: GB-TEVA-2020-GB-1831452

PATIENT
  Age: 33 Year
  Sex: Female
  Weight: 133.4 kg

DRUGS (8)
  1. LANSOPRAZOLE. [Concomitant]
     Active Substance: LANSOPRAZOLE
  2. COLECALCIFEROL [Concomitant]
     Active Substance: CHOLECALCIFEROL
  3. SALBUTAMOL [Concomitant]
     Active Substance: ALBUTEROL
  4. ACCORD?UK CO?CODAMOL [Concomitant]
  5. FLUOXETINE HYDROCHLORIDE. [Concomitant]
     Active Substance: FLUOXETINE HYDROCHLORIDE
  6. ORAMORPH [Concomitant]
     Active Substance: MORPHINE SULFATE
  7. MIRTAZAPINE. [Suspect]
     Active Substance: MIRTAZAPINE
     Indication: DEPRESSION
     Dosage: 30 MILLIGRAM DAILY; AT NIGHT
     Route: 048
  8. ACCORD?UK GABAPENTIN [Concomitant]

REACTIONS (1)
  - Jaundice cholestatic [Recovering/Resolving]
